FAERS Safety Report 11082394 (Version 3)
Quarter: 2015Q3

REPORT INFORMATION
  Report Type: Spontaneous
  Country: US (occurrence: US)
  Receive Date: 20150501
  Receipt Date: 20150727
  Transmission Date: 20151125
  Serious: No
  Sender: FDA-Public Use
  Company Number: US-PFIZER INC-2015141072

PATIENT
  Age: 86 Year
  Sex: Female
  Weight: 66 kg

DRUGS (3)
  1. ADVIL [Suspect]
     Active Substance: IBUPROFEN
     Indication: HEADACHE
  2. ADVIL [Suspect]
     Active Substance: IBUPROFEN
     Indication: NASOPHARYNGITIS
  3. ADVIL [Suspect]
     Active Substance: IBUPROFEN
     Indication: ORAL PAIN
     Dosage: 2 DF, AS NEEDED (TWO LIQUIGELS EACH MORNING)

REACTIONS (1)
  - Drug ineffective [Not Recovered/Not Resolved]
